FAERS Safety Report 8603180-7 (Version None)
Quarter: 2012Q3

REPORT INFORMATION
  Report Type: 
  Country: None (occurrence: None)
  Receive Date: 20120817
  Receipt Date: 19890717
  Transmission Date: 20120928
  Serious: Yes (Hospitalization)
  Sender: FDA-Public Use
  Company Number: US-ROCHE-1099911

PATIENT
  Sex: Female

DRUGS (5)
  1. ACTIVASE [Suspect]
     Route: 041
  2. ACTIVASE [Suspect]
     Indication: PRODUCT USED FOR UNKNOWN INDICATION
     Route: 040
  3. HEPARIN [Concomitant]
     Route: 040
  4. HEPARIN [Concomitant]
     Route: 041
  5. ACTIVASE [Suspect]
     Dosage: 20 CC PER HOUR

REACTIONS (5)
  - CHEST DISCOMFORT [None]
  - CHEST PAIN [None]
  - BACK PAIN [None]
  - VENTRICULAR EXTRASYSTOLES [None]
  - SUPRAVENTRICULAR TACHYCARDIA [None]
